FAERS Safety Report 22633086 (Version 3)
Quarter: 2024Q2

REPORT INFORMATION
  Report Type: Spontaneous
  Country: JP (occurrence: JP)
  Receive Date: 20230623
  Receipt Date: 20240624
  Transmission Date: 20240716
  Serious: Yes (Death, Other)
  Sender: FDA-Public Use
  Company Number: JP-CHUGAI-2023022210

PATIENT
  Age: 73 Year
  Sex: Male
  Weight: 65.4 kg

DRUGS (8)
  1. TECENTRIQ [Suspect]
     Active Substance: ATEZOLIZUMAB
     Indication: Lung neoplasm malignant
     Dosage: 1200 MILLIGRAM, ONCE/3WEEKS
     Route: 041
     Dates: start: 20230526, end: 20230526
  2. CARBOPLATIN [Concomitant]
     Active Substance: CARBOPLATIN
     Indication: Lung neoplasm malignant
     Dosage: SINGLE
     Route: 042
     Dates: start: 20230526, end: 20230526
  3. LEVOTHYROXINE [Concomitant]
     Active Substance: LEVOTHYROXINE\LEVOTHYROXINE SODIUM
     Dosage: UNK
     Route: 065
     Dates: start: 20230411
  4. ABRAXANE [Concomitant]
     Active Substance: PACLITAXEL
     Indication: Lung neoplasm malignant
     Dosage: UNK
     Route: 042
     Dates: start: 20230526, end: 20230602
  5. NAPROXEN SODIUM [Concomitant]
     Active Substance: NAPROXEN\NAPROXEN SODIUM
     Dosage: UNK
     Route: 065
     Dates: start: 20230502
  6. LANSOPRAZOLE [Concomitant]
     Active Substance: LANSOPRAZOLE
     Dosage: UNK
     Route: 065
     Dates: start: 20230502
  7. OXYCONTIN [Concomitant]
     Active Substance: OXYCODONE HYDROCHLORIDE
     Dosage: UNK
     Route: 065
     Dates: start: 20230520
  8. ANAMORELIN HYDROCHLORIDE [Concomitant]
     Active Substance: ANAMORELIN HYDROCHLORIDE
     Dosage: UNK
     Route: 065
     Dates: start: 20230527

REACTIONS (2)
  - Tumour hyperprogression [Unknown]
  - Lung disorder [Fatal]

NARRATIVE: CASE EVENT DATE: 20230609
